FAERS Safety Report 19145172 (Version 1)
Quarter: 2021Q2

REPORT INFORMATION
  Report Type: Spontaneous
  Country: JP (occurrence: JP)
  Receive Date: 20210416
  Receipt Date: 20210416
  Transmission Date: 20210717
  Serious: Yes (Death, Other)
  Sender: FDA-Public Use
  Company Number: JP-JNJFOC-20210419542

PATIENT
  Age: 72 Year

DRUGS (6)
  1. PREDONINE [Concomitant]
     Active Substance: PREDNISOLONE
  2. BELSOMRA [Concomitant]
     Active Substance: SUVOREXANT
  3. BIO?THREE [Concomitant]
     Active Substance: HERBALS
  4. UPTRAVI [Suspect]
     Active Substance: SELEXIPAG
     Indication: PULMONARY ARTERIAL HYPERTENSION
     Route: 048
     Dates: start: 20210108, end: 20210405
  5. OFEV [Concomitant]
     Active Substance: NINTEDANIB
  6. GASTROM [Concomitant]
     Active Substance: ECABET SODIUM

REACTIONS (4)
  - Pulmonary oedema [Unknown]
  - Diarrhoea [Unknown]
  - Pruritus [Unknown]
  - Gastrointestinal haemorrhage [Fatal]

NARRATIVE: CASE EVENT DATE: 20210108
